FAERS Safety Report 10357330 (Version 2)
Quarter: 2014Q4

REPORT INFORMATION
  Report Type: Spontaneous
  Country: AT (occurrence: AT)
  Receive Date: 20140801
  Receipt Date: 20141030
  Transmission Date: 20150528
  Serious: Yes (Life-Threatening, Other)
  Sender: FDA-Public Use
  Company Number: AT-ABBVIE-14P-009-1267066-00

PATIENT
  Sex: Male
  Weight: 105 kg

DRUGS (2)
  1. LIPCOR 200MG [Suspect]
     Active Substance: FENOFIBRATE
     Indication: HYPERTRIGLYCERIDAEMIA
     Dosage: DAILY DOSE: 200 MG (IN THE MORNING)
     Route: 065
     Dates: start: 20130417, end: 20140108
  2. LIPCOR 200MG [Suspect]
     Active Substance: FENOFIBRATE
     Indication: HYPO HDL CHOLESTEROLAEMIA
     Route: 065

REACTIONS (2)
  - Pulmonary embolism [Recovered/Resolved]
  - Venous thrombosis limb [Recovered/Resolved]

NARRATIVE: CASE EVENT DATE: 20140108
